FAERS Safety Report 9259345 (Version 4)
Quarter: 2014Q2

REPORT INFORMATION
  Report Type: Report from Study
  Country: CA (occurrence: CA)
  Receive Date: 20130427
  Receipt Date: 20140430
  Transmission Date: 20141212
  Serious: Yes (Hospitalization, Other)
  Sender: FDA-Public Use
  Company Number: CA-ROCHE-1191954

PATIENT
  Age: 57 Year
  Sex: Male
  Weight: 73 kg

DRUGS (9)
  1. ACTEMRA [Suspect]
     Indication: RHEUMATOID ARTHRITIS
     Route: 042
     Dates: start: 20101221
  2. ACTEMRA [Suspect]
     Route: 042
     Dates: start: 20111004
  3. ACTEMRA [Suspect]
     Route: 042
     Dates: start: 20120605
  4. METHOTREXATE [Concomitant]
  5. FOLIC ACID [Concomitant]
  6. CORTISONE [Concomitant]
  7. PANTOLOC [Concomitant]
  8. TYLENOL [Concomitant]
  9. DURAGESIC [Concomitant]

REACTIONS (5)
  - Rheumatoid arthritis [Recovering/Resolving]
  - Haematoma [Recovered/Resolved]
  - Weight decreased [Not Recovered/Not Resolved]
  - Bronchitis [Unknown]
  - Postoperative wound infection [Not Recovered/Not Resolved]
